FAERS Safety Report 6922729-3 (Version None)
Quarter: 2010Q3

REPORT INFORMATION
  Report Type: 
  Country: None (occurrence: None)
  Receive Date: 20100813
  Receipt Date: 20100726
  Transmission Date: 20110219
  Serious: Yes (Hospitalization)
  Sender: FDA-Public Use
  Company Number: SE-BRISTOL-MYERS SQUIBB COMPANY-15235955

PATIENT
  Age: 73 Year
  Sex: Male

DRUGS (12)
  1. GLUCOPHAGE [Suspect]
     Indication: DIABETES MELLITUS
     Dosage: FILM COATED TABLET
     Route: 048
     Dates: start: 20100614
  2. COZAAR [Concomitant]
     Dosage: FILM COATED TABLET
  3. OMEPRAZOLE [Concomitant]
  4. METOPROLOL TARTRATE [Concomitant]
  5. FINASTERIDE [Concomitant]
  6. AMLODIPINE [Concomitant]
  7. ACETAMINOPHEN [Concomitant]
     Dosage: FILM COATED TABLET
  8. BETAPRED [Concomitant]
     Dosage: TAB
  9. BEHEPAN [Concomitant]
     Dosage: FILM COATED TABLET
  10. TRANEXAMIC ACID [Concomitant]
     Dosage: FILM COATED TABLET
  11. FURIX [Concomitant]
     Dosage: TAB
  12. OROVITE [Concomitant]
     Dosage: FILM COATED TABLET

REACTIONS (4)
  - HAEMATURIA [None]
  - LACTIC ACIDOSIS [None]
  - URINARY RETENTION [None]
  - URINARY TRACT INFECTION [None]
